FAERS Safety Report 20419257 (Version 1)
Quarter: 2022Q1

REPORT INFORMATION
  Report Type: Spontaneous
  Country: FR (occurrence: FR)
  Receive Date: 20220203
  Receipt Date: 20220203
  Transmission Date: 20220423
  Serious: Yes (Other)
  Sender: FDA-Public Use
  Company Number: None

PATIENT
  Age: 14 Year
  Sex: Male
  Weight: 47 kg

DRUGS (1)
  1. HUMIRA [Suspect]
     Active Substance: ADALIMUMAB
     Indication: Hamartoma
     Dosage: 40MG/2SEMAINES
     Route: 058
     Dates: start: 20210312

REACTIONS (1)
  - Carotid artery aneurysm [Not Recovered/Not Resolved]

NARRATIVE: CASE EVENT DATE: 20210908
